FAERS Safety Report 8936109 (Version 1)
Quarter: 2012Q4

REPORT INFORMATION
  Report Type: 
  Country: US (occurrence: US)
  Receive Date: 20121130
  Receipt Date: 20121130
  Transmission Date: 20130627
  Serious: Yes (Other)
  Sender: FDA-Public Use
  Company Number: US-PFIZER INC-2012298868

PATIENT
  Age: 58 Year
  Sex: Female
  Weight: 54.42 kg

DRUGS (5)
  1. NEURONTIN [Suspect]
     Indication: MUSCLE SPASM
     Dosage: UNK
     Dates: start: 20121120
  2. NEURONTIN [Suspect]
     Indication: NERVE PAIN
  3. AMITRIPTYLINE [Suspect]
     Indication: MUSCLE SPASM
     Dosage: UNK
     Dates: start: 20121120
  4. AMITRIPTYLINE [Suspect]
     Indication: NERVE PAIN
  5. BACLOFEN [Concomitant]
     Dosage: UNK

REACTIONS (9)
  - Blood pressure decreased [Unknown]
  - Gait disturbance [Unknown]
  - Dysarthria [Unknown]
  - Hypersomnia [Unknown]
  - Feeling abnormal [Unknown]
  - Muscle atrophy [Unknown]
  - Drug ineffective for unapproved indication [Unknown]
  - Dry mouth [Unknown]
  - Off label use [Unknown]
